FAERS Safety Report 4963208-2 (Version None)
Quarter: 2006Q2

REPORT INFORMATION
  Report Type: 
  Country: None (occurrence: None)
  Receive Date: 20060405
  Receipt Date: 20060330
  Transmission Date: 20061013
  Serious: Yes (Other)
  Sender: FDA-Public Use
  Company Number: GB-AVENTIS-200613289GDDC

PATIENT
  Age: 37 Year
  Sex: Female

DRUGS (2)
  1. ARAVA [Suspect]
  2. CORTICOSTEROIDS [Concomitant]
     Dosage: DOSE: UNK

REACTIONS (2)
  - COLITIS ULCERATIVE [None]
  - DIARRHOEA [None]
